FAERS Safety Report 6265313-X (Version None)
Quarter: 2009Q3

REPORT INFORMATION
  Report Type: 
  Country: None (occurrence: None)
  Receive Date: 20090709
  Receipt Date: 20090709
  Transmission Date: 20100115
  Serious: Yes (Death)
  Sender: FDA-Public Use
  Company Number: None

PATIENT
  Age: 80 Year
  Sex: Male
  Weight: 64 kg

DRUGS (8)
  1. PURSENNID (NCH) (SENNA GLYCOSIDES (CA SALTS OF PURIFIED SENNA EXTRACT) [Suspect]
     Indication: CONSTIPATION
     Dosage: 24 MG DAILY, ORAL
     Route: 048
     Dates: start: 20090510
  2. MAGCOROL P (MAGNESIUM CITRATE) [Suspect]
     Indication: ENDOSCOPY LARGE BOWEL
     Dosage: 50 G DISSOLVED IN 150 ML OF WATER, ORAL
     Route: 048
     Dates: start: 20090511
  3. SHINLUCK (SODIUM PICOSULFATE) [Suspect]
     Dosage: 15 DROPS, ORAL; 20 DROPS DAILY, ORAL; 5 ML, BID, ORAL
     Route: 048
     Dates: start: 20090508, end: 20090508
  4. SHINLUCK (SODIUM PICOSULFATE) [Suspect]
     Dosage: 15 DROPS, ORAL; 20 DROPS DAILY, ORAL; 5 ML, BID, ORAL
     Route: 048
     Dates: start: 20090509, end: 20090510
  5. SHINLUCK (SODIUM PICOSULFATE) [Suspect]
     Dosage: 15 DROPS, ORAL; 20 DROPS DAILY, ORAL; 5 ML, BID, ORAL
     Route: 048
     Dates: start: 20090511
  6. VENCOLL (CASANTHRANOL, DOCUSATE SODIUM) [Concomitant]
  7. LECICARBON (LECITHIN, SODIUM BICARBONATE, SODIUM PHOSPHATE MONOBASIC ( [Concomitant]
  8. GLYCEROL 2.6% [Concomitant]

REACTIONS (9)
  - ARRHYTHMIA [None]
  - ASPHYXIA [None]
  - BLOOD ALKALINE PHOSPHATASE INCREASED [None]
  - BLOOD PRESSURE INCREASED [None]
  - CARDIAC ARREST [None]
  - PULSE ABSENT [None]
  - RECTAL CANCER [None]
  - RESPIRATORY ARREST [None]
  - UNRESPONSIVE TO STIMULI [None]
